FAERS Safety Report 8708200 (Version 2)
Quarter: 2012Q4

REPORT INFORMATION
  Report Type: 
  Country: FR (occurrence: FR)
  Receive Date: 20120806
  Receipt Date: 20121004
  Transmission Date: 20130627
  Serious: Yes (Hospitalization)
  Sender: FDA-Public Use
  Company Number: PHHY2012FR066789

PATIENT
  Age: 48 Year
  Sex: Female
  Weight: 101 kg

DRUGS (5)
  1. ONBREZ [Suspect]
     Indication: CHRONIC OBSTRUCTIVE PULMONARY DISEASE
     Dosage: 150 ug, QD
     Dates: start: 20111213, end: 20111216
  2. LASILIX [Concomitant]
     Indication: HYPERTENSION
     Dosage: 40 mg, QD
  3. APROVEL [Concomitant]
     Indication: HYPERTENSION
     Dosage: 300 mg, QD
  4. ZOLOFT [Concomitant]
     Indication: DEPRESSION
     Dosage: 50 mg, QD
  5. KESTINE [Concomitant]
     Indication: RHINITIS
     Dosage: 10 mg, BID

REACTIONS (5)
  - Angioedema [Recovered/Resolved]
  - Urticaria [Recovered/Resolved]
  - Pruritus [Recovered/Resolved]
  - Paraesthesia [Recovered/Resolved]
  - Insomnia [Recovered/Resolved]
